FAERS Safety Report 6338522-9 (Version None)
Quarter: 2009Q3

REPORT INFORMATION
  Report Type: 
  Country: None (occurrence: None)
  Receive Date: 20090901
  Receipt Date: 20090818
  Transmission Date: 20100115
  Serious: Yes (Death)
  Sender: FDA-Public Use
  Company Number: CLOF-1000663

PATIENT
  Age: 73 Year
  Sex: Male
  Weight: 72 kg

DRUGS (6)
  1. EVOLTRA               (COLFARABINE)          SOLUTION FOR INFUSION [Suspect]
     Indication: ACUTE MYELOID LEUKAEMIA
     Dosage: 36 MG; INTRAVENOUS
     Route: 042
     Dates: start: 20090728, end: 20090801
  2. TEMSIROLIMUS            (TEMSIROLIMUS) [Suspect]
     Indication: ACUTE MYELOID LEUKAEMIA
     Dosage: 25 MG; INTRAVENOUS
     Route: 042
     Dates: start: 20090728, end: 20090728
  3. TEMSIROLIMUS            (TEMSIROLIMUS) [Suspect]
     Indication: ACUTE MYELOID LEUKAEMIA
     Dosage: 25 MG; INTRAVENOUS
     Route: 042
     Dates: start: 20090804, end: 20090804
  4. GLAZIDIM            (CEFTAZIDIME) [Concomitant]
  5. ANTRA           (OMEPRAZOLE SODIUM) [Concomitant]
  6. ZOVIRAX [Concomitant]

REACTIONS (6)
  - ABDOMINAL PAIN [None]
  - APLASIA [None]
  - CHOLELITHIASIS [None]
  - DIARRHOEA [None]
  - GASTROINTESTINAL INFLAMMATION [None]
  - NEUTROPENIA [None]
